FAERS Safety Report 4726947-4 (Version None)
Quarter: 2005Q3

REPORT INFORMATION
  Report Type: 
  Country: None (occurrence: None)
  Receive Date: 20050725
  Receipt Date: 20050725
  Transmission Date: 20060218
  Serious: No
  Sender: FDA-Public Use
  Company Number: None

PATIENT
  Age: 43 Year
  Sex: Female
  Weight: 80.2867 kg

DRUGS (1)
  1. ALLEGRA [Suspect]
     Indication: PRURITUS
     Dosage: 180 MG    ONCE DAILY   ORAL
     Route: 048
     Dates: start: 20050714, end: 20050720

REACTIONS (4)
  - ANXIETY [None]
  - DIZZINESS [None]
  - FEELING ABNORMAL [None]
  - RESPIRATORY DISORDER [None]
